FAERS Safety Report 17919766 (Version 1)
Quarter: 2020Q2

REPORT INFORMATION
  Report Type: Not Available
  Country: US (occurrence: US)
  Receive Date: 20200619
  Receipt Date: 20200619
  Transmission Date: 20200714
  Serious: No
  Sender: FDA-Public Use
  Company Number: US-C B FLEET CO INC-202003-US-001047

PATIENT
  Age: 10 Year
  Sex: Male

DRUGS (1)
  1. NIX COMPLETE MAXIMUM STRENGTH LICE ELIMINATION [Suspect]
     Active Substance: PERMETHRIN
     Indication: LICE INFESTATION
     Dosage: PRODUCT USED ONCE
     Route: 061

REACTIONS (3)
  - Application site pruritus [Unknown]
  - Skin burning sensation [Unknown]
  - Rash [Recovered/Resolved]
